FAERS Safety Report 6652507-4 (Version None)
Quarter: 2010Q1

REPORT INFORMATION
  Report Type: 
  Country: None (occurrence: None)
  Receive Date: 20100324
  Receipt Date: 20100311
  Transmission Date: 20100710
  Serious: Yes (Hospitalization)
  Sender: FDA-Public Use
  Company Number: 1000012608

PATIENT
  Age: 19 Year
  Sex: Female

DRUGS (3)
  1. ESCITALOPRAM [Suspect]
     Indication: DEPRESSION
     Dosage: ORAL
     Route: 048
     Dates: start: 20100118, end: 20100208
  2. TEGRETOL [Suspect]
     Indication: EPILEPSY
     Dosage: ORAL
     Route: 048
     Dates: start: 20100118, end: 20100208
  3. KEPPRA [Concomitant]

REACTIONS (5)
  - CHEILITIS [None]
  - DYSPHAGIA [None]
  - ORAL DISORDER [None]
  - RASH VESICULAR [None]
  - TOXIC SKIN ERUPTION [None]
